FAERS Safety Report 6525444-3 (Version None)
Quarter: 2010Q1

REPORT INFORMATION
  Report Type: 
  Country: None (occurrence: None)
  Receive Date: 20100104
  Receipt Date: 20091222
  Transmission Date: 20100710
  Serious: Yes (Other)
  Sender: FDA-Public Use
  Company Number: CHPA2009JP22803

PATIENT
  Age: 58 Year
  Sex: Female

DRUGS (3)
  1. PURSENNID (NCH) [Suspect]
     Indication: CONSTIPATION
     Dosage: 24 MG, QD
     Route: 048
  2. PURSENNID (NCH) [Suspect]
     Dosage: 48 MG, QD
     Route: 048
  3. ALLEGRA [Concomitant]
     Dosage: 1 DF, UNK
     Route: 048

REACTIONS (4)
  - ANXIETY [None]
  - DRUG DEPENDENCE [None]
  - GASTROINTESTINAL DISORDER [None]
  - INTENTIONAL DRUG MISUSE [None]
